FAERS Safety Report 22594650 (Version 3)
Quarter: 2023Q2

REPORT INFORMATION
  Report Type: Report from Study
  Country: AR (occurrence: None)
  Receive Date: 20230613
  Receipt Date: 20230628
  Transmission Date: 20230722
  Serious: Yes (Hospitalization)
  Sender: FDA-Public Use
  Company Number: AR-ROCHE-3364799

PATIENT
  Age: 56 Year
  Sex: Female
  Weight: 83 kg

DRUGS (15)
  1. MOSUNETUZUMAB [Suspect]
     Active Substance: MOSUNETUZUMAB
     Indication: B-cell lymphoma
     Dosage: ON 23/MAR/2023, RECEIVED LAST DOSE 45 MG OF MOSUNETUZUMAB PRIOR TO ADVERSE EVENT (AE) AND SERIOUS AD
     Route: 058
     Dates: start: 20220906
  2. POLATUZUMAB VEDOTIN [Suspect]
     Active Substance: POLATUZUMAB VEDOTIN
     Indication: B-cell lymphoma
     Dosage: ON 01/FEB/2023, RECEIVED LAST DOSE 153 MG OF POLATUZUMAB VEDOTIN PRIOR TO ADVERSE EVENT (AE) AND SER
     Route: 042
     Dates: start: 20220906
  3. TOCILIZUMAB [Suspect]
     Active Substance: TOCILIZUMAB
     Indication: B-cell lymphoma
     Route: 042
     Dates: start: 20220912
  4. LEVOTHYROXINE [Concomitant]
     Active Substance: LEVOTHYROXINE
     Indication: Hypothyroidism
     Dates: start: 2008
  5. ESCITALOPRAM [Concomitant]
     Active Substance: ESCITALOPRAM OXALATE
     Indication: Depression
     Dates: start: 20211201
  6. ESCITALOPRAM [Concomitant]
     Active Substance: ESCITALOPRAM OXALATE
     Dates: start: 20211201
  7. METOCLOPRAMIDE [Concomitant]
     Active Substance: METOCLOPRAMIDE
     Indication: Cytokine release syndrome
     Route: 030
     Dates: start: 20220911
  8. DORIXINA [Concomitant]
     Indication: Cytokine release syndrome
     Dosage: 1 AMPULE
     Route: 042
     Dates: start: 20220911
  9. DAPTOMYCIN [Concomitant]
     Active Substance: DAPTOMYCIN
     Indication: Cytokine release syndrome
     Route: 042
     Dates: start: 20220912
  10. ACETAMINOPHEN [Concomitant]
     Active Substance: ACETAMINOPHEN
     Indication: Cytokine release syndrome
     Route: 048
     Dates: start: 20220912
  11. NOREPINEPHRINE [Concomitant]
     Active Substance: NOREPINEPHRINE
     Indication: Cytokine release syndrome
     Route: 042
     Dates: start: 20220912
  12. OMEPRAZOLE [Concomitant]
     Active Substance: OMEPRAZOLE
     Indication: Gastritis prophylaxis
     Dates: start: 20220912
  13. DERMADEX (ARGENTINA) [Concomitant]
     Indication: Injection site reaction
     Route: 061
     Dates: start: 20220908
  14. ERYTHROPOIETIN [Concomitant]
     Active Substance: ERYTHROPOIETIN
     Indication: Anaemia
     Route: 058
     Dates: start: 20221116
  15. PREGABALIN [Concomitant]
     Active Substance: PREGABALIN
     Indication: Neuropathy peripheral
     Route: 048
     Dates: start: 20230425

REACTIONS (1)
  - Febrile neutropenia [Recovered/Resolved]

NARRATIVE: CASE EVENT DATE: 20230606
